FAERS Safety Report 19500076 (Version 1)
Quarter: 2021Q3

REPORT INFORMATION
  Report Type: Spontaneous
  Country: JP (occurrence: JP)
  Receive Date: 20210706
  Receipt Date: 20210706
  Transmission Date: 20211014
  Serious: Yes (Other)
  Sender: FDA-Public Use
  Company Number: JP-ELI_LILLY_AND_COMPANY-JP202106015007

PATIENT
  Age: 57 Year
  Sex: Male
  Weight: 89 kg

DRUGS (23)
  1. ADCIRCA [Suspect]
     Active Substance: TADALAFIL
     Indication: PULMONARY ARTERIAL HYPERTENSION
     Dosage: 40 MG, DAILY
     Route: 065
  2. UPTRAVI [Suspect]
     Active Substance: SELEXIPAG
     Dosage: 2 MG, DAILY
     Route: 048
     Dates: start: 20170606, end: 20170619
  3. UPTRAVI [Suspect]
     Active Substance: SELEXIPAG
     Dosage: 3.2 MG, DAILY
     Route: 048
     Dates: start: 20170718
  4. LOXONIN [Concomitant]
     Active Substance: LOXOPROFEN SODIUM
     Indication: BACK PAIN
     Dosage: 60 MG, DAILY
  5. UPTRAVI [Suspect]
     Active Substance: SELEXIPAG
     Dosage: 0.8 MG, DAILY
     Route: 048
     Dates: start: 20170314, end: 20170327
  6. URINORM [BENZBROMARONE] [Concomitant]
     Indication: HYPERTENSION
     Dosage: 50 MG, DAILY
  7. EPL [POLYENE PHOSPHATIDYLCHOLINE] [Concomitant]
     Indication: DYSLIPIDAEMIA
     Dosage: 500 MG, DAILY
  8. ADALAT CC [Concomitant]
     Active Substance: NIFEDIPINE
     Indication: HYPERTENSION
     Dosage: 40 MG, DAILY
     Dates: end: 20190129
  9. DEPAS [ETIZOLAM] [Concomitant]
     Active Substance: ETIZOLAM
     Indication: INSOMNIA
     Dosage: 1.5 MG, DAILY
  10. UPTRAVI [Suspect]
     Active Substance: SELEXIPAG
     Dosage: 2.8 MG, DAILY
     Route: 048
     Dates: start: 20170704, end: 20170717
  11. UPTRAVI [Suspect]
     Active Substance: SELEXIPAG
     Indication: PULMONARY ARTERIAL HYPERTENSION
     Dosage: 0.4 MG, DAILY
     Route: 048
     Dates: start: 20170228, end: 20170313
  12. UPTRAVI [Suspect]
     Active Substance: SELEXIPAG
     Dosage: 1.6 MG, DAILY
     Route: 048
     Dates: start: 20170509, end: 20170605
  13. AZILVA [Concomitant]
     Active Substance: AZILSARTAN KAMEDOXOMIL
     Indication: HYPERTENSION
     Dosage: 10 MG, DAILY
  14. LEVOTHYROXINE SODIUM. [Concomitant]
     Active Substance: LEVOTHYROXINE SODIUM
     Indication: HYPOTHYROIDISM
     Dosage: 200 UG, DAILY
  15. UPTRAVI [Suspect]
     Active Substance: SELEXIPAG
     Dosage: 1.2 MG, DAILY
     Route: 048
     Dates: start: 20170328, end: 20170508
  16. UPTRAVI [Suspect]
     Active Substance: SELEXIPAG
     Dosage: 2.4 MG, DAILY
     Route: 048
     Dates: start: 20170620, end: 20170703
  17. ALLEGRA [Concomitant]
     Active Substance: FEXOFENADINE HYDROCHLORIDE
     Indication: RHINITIS ALLERGIC
     Dosage: 120 MG, DAILY
  18. VOLIBRIS [Concomitant]
     Active Substance: AMBRISENTAN
     Indication: PULMONARY ARTERIAL HYPERTENSION
     Dosage: 10 MG, DAILY
  19. SELARA [Concomitant]
     Active Substance: EPLERENONE
     Indication: HYPERTENSION
     Dosage: 150 MG, DAILY
  20. URSO [Concomitant]
     Active Substance: URSODIOL
     Indication: HEPATITIS C
     Dosage: 200 MG, DAILY
  21. MYSLEE [Concomitant]
     Active Substance: ZOLPIDEM TARTRATE
     Indication: INSOMNIA
     Dosage: 10 MG, DAILY
     Dates: end: 20171120
  22. DIART [AZOSEMIDE] [Concomitant]
     Indication: CARDIAC FAILURE
     Dosage: 60 MG, DAILY
  23. BENZALIN [NITRAZEPAM] [Concomitant]
     Active Substance: NITRAZEPAM
     Indication: INSOMNIA
     Dosage: 10 MG, DAILY
     Dates: start: 20171121

REACTIONS (3)
  - Cardiac failure [Recovering/Resolving]
  - Hypotension [Recovering/Resolving]
  - Gastrooesophageal reflux disease [Recovering/Resolving]

NARRATIVE: CASE EVENT DATE: 20170314
